FAERS Safety Report 11894202 (Version 1)
Quarter: 2016Q1

REPORT INFORMATION
  Report Type: Spontaneous
  Country: US (occurrence: US)
  Receive Date: 20160107
  Receipt Date: 20160107
  Transmission Date: 20160526
  Serious: No
  Sender: FDA-Public Use
  Company Number: US-B.I. PHARMACEUTICALS,INC./RIDGEFIELD-2015-BI-72903BP

PATIENT
  Age: 59 Year
  Sex: Female
  Weight: 79.38 kg

DRUGS (3)
  1. AMYTRYPILLINE [Concomitant]
     Indication: MIGRAINE
     Dosage: 100 MG
     Route: 048
  2. SYNJARDY [Suspect]
     Active Substance: EMPAGLIFLOZIN\METFORMIN HYDROCHLORIDE
     Indication: TYPE 2 DIABETES MELLITUS
     Dosage: DOSE PER APPLICATION: 5 MG /1000 MG; DAILY DOSE: 10 MG/2000 MG
     Route: 048
     Dates: start: 201511, end: 201512
  3. SYNJARDY [Suspect]
     Active Substance: EMPAGLIFLOZIN\METFORMIN HYDROCHLORIDE
     Dosage: DOSE PER APPLICATION: 5 MG /1000 MG; DAILY DOSE: 10 MG/2000 MG
     Route: 048
     Dates: start: 201512, end: 201512

REACTIONS (1)
  - Nausea [Recovered/Resolved]

NARRATIVE: CASE EVENT DATE: 201511
